FAERS Safety Report 9646093 (Version 2)
Quarter: 2013Q4

REPORT INFORMATION
  Report Type: Spontaneous
  Country: US (occurrence: US)
  Receive Date: 20131025
  Receipt Date: 20131025
  Transmission Date: 20140711
  Serious: No
  Sender: FDA-Public Use
  Company Number: US-TEVA-404532USA

PATIENT
  Age: 54 Year
  Sex: Female

DRUGS (7)
  1. PACLITAXEL [Suspect]
     Indication: OVARIAN DISORDER
     Route: 042
  2. AVASTIN [Concomitant]
  3. ATIVAN [Concomitant]
  4. MULTIVITAMIN [Concomitant]
  5. VITAMIN B COMPLEX [Concomitant]
  6. ROBITUSSIN AC [Concomitant]
  7. ZOFRAN [Concomitant]

REACTIONS (1)
  - Rash [Recovered/Resolved]
